FAERS Safety Report 13916712 (Version 1)
Quarter: 2017Q3

REPORT INFORMATION
  Report Type: Spontaneous
  Country: US (occurrence: US)
  Receive Date: 20170829
  Receipt Date: 20170829
  Transmission Date: 20171127
  Serious: Yes (Hospitalization, Other)
  Sender: FDA-Public Use
  Company Number: US-BAYER-2017-159663

PATIENT
  Age: 72 Year
  Sex: Female
  Weight: 68.03 kg

DRUGS (7)
  1. NEURONTIN [Concomitant]
     Active Substance: GABAPENTIN
  2. CENTRUM SELECT 50+ [Concomitant]
     Active Substance: VITAMINS
     Dosage: UNK
  3. BAYER LOW DOSE [Suspect]
     Active Substance: ASPIRIN
     Indication: PROPHYLAXIS
     Dosage: 1 DF, QD DAILY 5-6 YEARS
     Route: 048
  4. ST. JOSEPH ASPIRIN ADULT LOW DOSE [Suspect]
     Active Substance: ASPIRIN
  5. BAYER LOW DOSE [Suspect]
     Active Substance: ASPIRIN
     Indication: ANTICOAGULANT THERAPY
  6. BAYER LOW DOSE [Suspect]
     Active Substance: ASPIRIN
     Indication: PROPHYLAXIS
     Dosage: 1 DF, QD DAILY 5-6 YEARS
     Route: 048
  7. BAYER LOW DOSE [Suspect]
     Active Substance: ASPIRIN
     Indication: ANTICOAGULANT THERAPY

REACTIONS (11)
  - Dyspepsia [Recovered/Resolved]
  - Drug prescribing error [None]
  - Gastrooesophageal reflux disease [Not Recovered/Not Resolved]
  - Oral pain [Recovered/Resolved]
  - Throat irritation [Recovered/Resolved]
  - Product use in unapproved indication [Recovered/Resolved]
  - Gastric ulcer [Not Recovered/Not Resolved]
  - Abdominal pain upper [None]
  - Hospitalisation [Unknown]
  - Myocardial infarction [Recovered/Resolved]
  - Gastritis [Recovered/Resolved]

NARRATIVE: CASE EVENT DATE: 201610
